FAERS Safety Report 23437896 (Version 1)
Quarter: 2024Q1

REPORT INFORMATION
  Report Type: Spontaneous
  Country: US (occurrence: None)
  Receive Date: 20240123
  Receipt Date: 20240123
  Transmission Date: 20240410
  Serious: No
  Sender: FDA-Public Use
  Company Number: None

PATIENT
  Sex: Female

DRUGS (1)
  1. KISQALI [Suspect]
     Active Substance: RIBOCICLIB
     Indication: Breast cancer female
     Route: 048
     Dates: start: 202312, end: 20240112

REACTIONS (3)
  - Adverse drug reaction [None]
  - Epistaxis [None]
  - Blood creatinine increased [None]
